FAERS Safety Report 8053465-0 (Version None)
Quarter: 2012Q1

REPORT INFORMATION
  Report Type: 
  Country: None (occurrence: None)
  Receive Date: 20120118
  Receipt Date: 20120111
  Transmission Date: 20120608
  Serious: Yes (Hospitalization)
  Sender: FDA-Public Use
  Company Number: IT-GLAXOSMITHKLINE-B0775792A

PATIENT
  Age: 43 Year
  Sex: Female

DRUGS (6)
  1. UNSPECIFIED DRUG(S) [Suspect]
     Indication: PRODUCT USED FOR UNKNOWN INDICATION
     Dosage: 50TAB PER DAY
     Route: 065
     Dates: start: 20120110
  2. ALCOHOL [Suspect]
     Indication: PRODUCT USED FOR UNKNOWN INDICATION
     Route: 065
     Dates: start: 20120110
  3. NICOTINE [Concomitant]
     Indication: EX-TOBACCO USER
     Route: 065
  4. FLUTICASONE PROPIONATE/SALMETEROL [Suspect]
     Indication: OBSTRUCTIVE AIRWAYS DISORDER
     Route: 065
     Dates: start: 20111201
  5. PAROXETINE HCL [Suspect]
     Indication: PRODUCT USED FOR UNKNOWN INDICATION
     Route: 065
     Dates: start: 20111001
  6. ANTACIDS [Concomitant]
     Indication: GASTROOESOPHAGEAL REFLUX DISEASE
     Route: 065

REACTIONS (11)
  - ASTHENIA [None]
  - CONVULSION [None]
  - DECREASED APPETITE [None]
  - DYSPNOEA [None]
  - WEIGHT DECREASED [None]
  - SUICIDE ATTEMPT [None]
  - AMNESIA [None]
  - OVERDOSE [None]
  - SYNCOPE [None]
  - SUFFOCATION FEELING [None]
  - INSOMNIA [None]
